FAERS Safety Report 5802676-0 (Version None)
Quarter: 2008Q3

REPORT INFORMATION
  Report Type: 
  Country: None (occurrence: None)
  Receive Date: 20080702
  Receipt Date: 20080616
  Transmission Date: 20090109
  Serious: Yes (Hospitalization)
  Sender: FDA-Public Use
  Company Number: S08-GER-02208-01

PATIENT
  Age: 67 Year
  Sex: Male

DRUGS (1)
  1. ESCITALOPRAM [Suspect]

REACTIONS (1)
  - DERMATITIS ALLERGIC [None]
